FAERS Safety Report 12395249 (Version 1)
Quarter: 2016Q2

REPORT INFORMATION
  Report Type: Report from Study
  Country: US (occurrence: US)
  Receive Date: 20160523
  Receipt Date: 20160523
  Transmission Date: 20160815
  Serious: No
  Sender: FDA-Public Use
  Company Number: US-MDT-ADR-2016-00349

PATIENT
  Age: 72 Year
  Sex: Female

DRUGS (4)
  1. BACLOFEN. [Suspect]
     Active Substance: BACLOFEN
     Dosage: 70.11 MCG/DAY
     Route: 037
     Dates: start: 20130214
  2. BACLOFEN. [Suspect]
     Active Substance: BACLOFEN
     Dosage: 100.07 MCG/DAY
     Route: 037
     Dates: end: 20130214
  3. DILAUDID [Suspect]
     Active Substance: HYDROMORPHONE HYDROCHLORIDE
     Dosage: 35.05 MCG/DAY
     Route: 037
     Dates: start: 20130214
  4. DILAUDID [Suspect]
     Active Substance: HYDROMORPHONE HYDROCHLORIDE
     Dosage: 50.04 MCG/DAY
     Route: 037
     Dates: end: 20130214

REACTIONS (4)
  - Urinary retention [Recovered/Resolved]
  - Muscular weakness [Recovered/Resolved]
  - Adverse drug reaction [Recovered/Resolved]
  - Sedation [Recovered/Resolved]

NARRATIVE: CASE EVENT DATE: 201302
